FAERS Safety Report 7761171-2 (Version None)
Quarter: 2011Q3

REPORT INFORMATION
  Report Type: 
  Country: None (occurrence: None)
  Receive Date: 20110920
  Receipt Date: 20110909
  Transmission Date: 20111222
  Serious: Yes (Other)
  Sender: FDA-Public Use
  Company Number: US-BAYER-2011-015271

PATIENT
  Sex: Female
  Weight: 97.506 kg

DRUGS (4)
  1. DICYCLOMINE [Concomitant]
  2. YAZ [Suspect]
     Indication: CONTRACEPTION
     Dosage: UNK
     Dates: start: 20071001, end: 20080301
  3. WELLBUTRIN XL [Concomitant]
  4. SUCRALFATE [Concomitant]

REACTIONS (4)
  - CHOLELITHIASIS [None]
  - CHOLECYSTITIS CHRONIC [None]
  - GALLBLADDER DISORDER [None]
  - PAIN [None]
